FAERS Safety Report 22106829 (Version 1)
Quarter: 2023Q1

REPORT INFORMATION
  Report Type: Spontaneous
  Country: GB (occurrence: None)
  Receive Date: 20230317
  Receipt Date: 20230317
  Transmission Date: 20230418
  Serious: Yes (Other)
  Sender: FDA-Public Use
  Company Number: GB-ROCHE-3309419

PATIENT
  Age: 9 Year
  Sex: Male
  Weight: 49.1 kg

DRUGS (6)
  1. ACTEMRA [Suspect]
     Active Substance: TOCILIZUMAB
     Indication: Craniopharyngioma
     Route: 042
     Dates: start: 20220623, end: 20221111
  2. LEVOTHYROXINE [Concomitant]
     Active Substance: LEVOTHYROXINE
     Indication: Hypothyroidism
     Dosage: 75 MCG
     Route: 048
     Dates: start: 20210716
  3. HYDROCORTISONE [Concomitant]
     Active Substance: HYDROCORTISONE
     Dosage: 5 MG IN THE MORNING, 2.5 MG IN THE AFTERNOON, 2.5 MG IN THE EVENING(8.5 MG PER M SQUARE PAR DAY)
     Route: 048
     Dates: start: 20210716
  4. HYDROCORTISONE [Concomitant]
     Active Substance: HYDROCORTISONE
     Dosage: SICK DAY HYDROCORTISONE
  5. HYDROCORTISONE [Concomitant]
     Active Substance: HYDROCORTISONE
     Dosage: EMERGENCY HYDROCORTISONE(SODIUM PHOSPHATE 100 MG/1 ML)
     Route: 030
  6. DDAVP [Concomitant]
     Active Substance: DESMOPRESSIN ACETATE
     Dosage: 25 MCG IN THE MORNING,40 MCG IN THE AFTERNOON AND 50 MCG IN THE EVENING.?DOSE TO BE INCREASED TO 60

REACTIONS (2)
  - Thrombocytopenia [Recovered/Resolved]
  - Blood fibrinogen decreased [Recovered/Resolved]

NARRATIVE: CASE EVENT DATE: 20221111
